FAERS Safety Report 20867229 (Version 1)
Quarter: 2022Q2

REPORT INFORMATION
  Report Type: Spontaneous
  Country: US (occurrence: None)
  Receive Date: 20220523
  Receipt Date: 20220523
  Transmission Date: 20220721
  Serious: Yes (Other)
  Sender: FDA-Public Use
  Company Number: None

PATIENT
  Age: 64 Year
  Sex: Male
  Weight: 127.46 kg

DRUGS (9)
  1. ERLEADA [Suspect]
     Active Substance: APALUTAMIDE
     Indication: Prostate cancer
     Dosage: 180MG DAILY ORAL?
     Route: 048
     Dates: start: 20220224
  2. ERLEADA [Suspect]
     Active Substance: APALUTAMIDE
     Indication: Prostatic specific antigen increased
  3. ATORVASTATIN CALCIUM [Concomitant]
     Active Substance: ATORVASTATIN CALCIUM
  4. FIRMAGON [Concomitant]
     Active Substance: DEGARELIX ACETATE
  5. DILTIAZEM [Concomitant]
     Active Substance: DILTIAZEM
  6. LUPRON DEPOT [Concomitant]
     Active Substance: LEUPROLIDE ACETATE
  7. XARELTO [Concomitant]
     Active Substance: RIVAROXABAN
  8. ADVIL [Concomitant]
     Active Substance: IBUPROFEN
  9. VITAMIN D [Concomitant]
     Active Substance: VITAMIN D NOS

REACTIONS (1)
  - Atrial fibrillation [None]
